FAERS Safety Report 5325666-3 (Version None)
Quarter: 2007Q2

REPORT INFORMATION
  Report Type: 
  Country: None (occurrence: None)
  Receive Date: 20070515
  Receipt Date: 20070503
  Transmission Date: 20071010
  Serious: Yes (Other)
  Sender: FDA-Public Use
  Company Number: US-PFIZER INC-2007036246

PATIENT
  Sex: Male
  Weight: 86.363 kg

DRUGS (5)
  1. XALATAN [Suspect]
     Indication: GLAUCOMA
     Dates: start: 19980101, end: 20060101
  2. LUMIGAN [Suspect]
  3. LOVASTATIN [Concomitant]
  4. LISINOPRIL [Concomitant]
  5. ATENOLOL [Concomitant]

REACTIONS (6)
  - EAR DISCOMFORT [None]
  - MACULAR DEGENERATION [None]
  - MUCOUS MEMBRANE DISORDER [None]
  - RHINORRHOEA [None]
  - SCOTOMA [None]
  - VISUAL FIELD DEFECT [None]
